FAERS Safety Report 5385071-0 (Version None)
Quarter: 2007Q3

REPORT INFORMATION
  Report Type: 
  Country: None (occurrence: None)
  Receive Date: 20070706
  Receipt Date: 20070706
  Transmission Date: 20080115
  Serious: Yes (Life-Threatening)
  Sender: FDA-Public Use
  Company Number: None

PATIENT
  Age: 49 Year
  Sex: Female
  Weight: 95.2554 kg

DRUGS (2)
  1. ENBREL [Suspect]
     Indication: RHEUMATOID ARTHRITIS
  2. METHOTREXATE [Suspect]

REACTIONS (4)
  - PHARYNGOLARYNGEAL PAIN [None]
  - RENAL FAILURE [None]
  - RESPIRATORY ARREST [None]
  - SEPTIC SHOCK [None]
